FAERS Safety Report 21508452 (Version 1)
Quarter: 2022Q4

REPORT INFORMATION
  Report Type: Spontaneous
  Country: US (occurrence: None)
  Receive Date: 20221026
  Receipt Date: 20221026
  Transmission Date: 20230113
  Serious: No
  Sender: FDA-Public Use
  Company Number: None

PATIENT
  Age: 62 Year
  Sex: Female

DRUGS (1)
  1. DUPIXENT [Suspect]
     Active Substance: DUPILUMAB
     Indication: Dermatitis
     Dosage: FREQUENCY : DAILY;?
     Route: 058
     Dates: start: 20221025

REACTIONS (2)
  - Device defective [None]
  - Incorrect dose administered [None]

NARRATIVE: CASE EVENT DATE: 20221025
